FAERS Safety Report 10618582 (Version 1)
Quarter: 2014Q4

REPORT INFORMATION
  Report Type: Spontaneous
  Country: US (occurrence: None)
  Receive Date: 20141125
  Receipt Date: 20141125
  Transmission Date: 20150529
  Serious: Yes (Life-Threatening, Hospitalization)
  Sender: FDA-Public Use
  Company Number: 201411-US-002043

PATIENT
  Age: 4 Year
  Sex: Male
  Weight: 17.1 kg

DRUGS (1)
  1. FLEET NOS [Suspect]
     Active Substance: BISACODYL OR GLYCERIN OR MINERAL OIL OR SODIUM PHOSPHATE, DIBASIC\SODIUM PHOSPHATE, MONOBASIC
     Indication: CONSTIPATION
     Dosage: EVERY 2 TO 3 DAYS, EVERY 2 TO 3 DAYS, GASTROENTERAL USE

REACTIONS (19)
  - Heart rate decreased [None]
  - Hypocalcaemia [None]
  - Foreign body [None]
  - Metabolic acidosis [None]
  - Constipation [None]
  - Generalised tonic-clonic seizure [None]
  - Tachycardia [None]
  - Haemodynamic instability [None]
  - Unresponsive to stimuli [None]
  - Incorrect route of drug administration [None]
  - Asthenia [None]
  - Tachypnoea [None]
  - Blood pressure decreased [None]
  - Incorrect drug administration duration [None]
  - Tetany [None]
  - Coma [None]
  - Ventricular tachycardia [None]
  - Nervous system disorder [None]
  - Hyperphosphataemia [None]
